FAERS Safety Report 15410659 (Version 1)
Quarter: 2018Q3

REPORT INFORMATION
  Report Type: Report from Study
  Country: None (occurrence: US)
  Receive Date: 20180921
  Receipt Date: 20180921
  Transmission Date: 20181010
  Serious: Yes (Other)
  Sender: FDA-Public Use
  Company Number: US-ABBVIE-18K-163-2488564-00

PATIENT
  Age: 68 Year
  Sex: Male

DRUGS (1)
  1. HUMIRA [Suspect]
     Active Substance: ADALIMUMAB
     Indication: COLITIS ULCERATIVE
     Route: 058

REACTIONS (5)
  - Spinal column injury [Unknown]
  - Fall [Recovering/Resolving]
  - Varicose vein [Not Recovered/Not Resolved]
  - Buttock injury [Unknown]
  - Contusion [Unknown]

NARRATIVE: CASE EVENT DATE: 201808
